FAERS Safety Report 7279742-9 (Version None)
Quarter: 2011Q1

REPORT INFORMATION
  Report Type: 
  Country: None (occurrence: None)
  Receive Date: 20110208
  Receipt Date: 20110126
  Transmission Date: 20110831
  Serious: Yes (Hospitalization)
  Sender: FDA-Public Use
  Company Number: KR-BAYER-2011-008181

PATIENT
  Age: 69 Year
  Sex: Female

DRUGS (4)
  1. PROTON PUMP INHIBITORS [Concomitant]
     Indication: GASTRIC DISORDER
  2. FLOXURIDINE [Concomitant]
     Indication: HEPATIC NEOPLASM MALIGNANT
     Dosage: 0.3 MG/KG, UNK
     Route: 025
  3. NEXAVAR [Suspect]
     Indication: HEPATIC NEOPLASM MALIGNANT
     Dosage: 400 MG, BID
     Route: 048
  4. SUCRALFATE [Concomitant]
     Indication: GASTRIC DISORDER

REACTIONS (3)
  - PRURITUS [None]
  - SPLENIC INFARCTION [None]
  - ABDOMINAL PAIN [None]
